FAERS Safety Report 17948725 (Version 1)
Quarter: 2020Q2

REPORT INFORMATION
  Report Type: Spontaneous
  Country: IT (occurrence: IT)
  Receive Date: 20200626
  Receipt Date: 20200626
  Transmission Date: 20200714
  Serious: Yes (Death)
  Sender: FDA-Public Use
  Company Number: IT-ROCHE-2623644

PATIENT
  Age: 60 Year
  Sex: Male

DRUGS (1)
  1. ROACTEMRA [Suspect]
     Active Substance: TOCILIZUMAB
     Indication: COVID-19 PNEUMONIA
     Route: 058
     Dates: start: 20200327, end: 20200327

REACTIONS (3)
  - Product use in unapproved indication [Unknown]
  - Respiratory failure [Fatal]
  - Off label use [Unknown]

NARRATIVE: CASE EVENT DATE: 20200413
